FAERS Safety Report 19575272 (Version 4)
Quarter: 2022Q1

REPORT INFORMATION
  Report Type: Other
  Country: FR (occurrence: FR)
  Receive Date: 20210719
  Receipt Date: 20220215
  Transmission Date: 20220424
  Serious: Yes (Other)
  Sender: FDA-Public Use
  Company Number: FR-002147023-NVSC2021FR150840

PATIENT
  Age: 62 Year

DRUGS (4)
  1. RITUXIMAB [Suspect]
     Active Substance: RITUXIMAB
     Indication: Central nervous system lymphoma
     Dosage: (21 DAY CYCLES) TRIPLE COMBINATION THERAPY ; R 2 I REGIMEN)
     Route: 065
  2. IBRUTINIB [Suspect]
     Active Substance: IBRUTINIB
     Indication: Central nervous system lymphoma
     Dosage: (21 DAY CYCLES)TRIPLE COMBINATION THERAPY; R 2 I REGIMEN; IBRUTINIB WAS ADMINISTRATED CONTINUOUSLY A
     Route: 048
  3. LENALIDOMIDE [Suspect]
     Active Substance: LENALIDOMIDE
     Indication: Central nervous system lymphoma
     Dosage: (21 DAY CYCLES)
     Route: 048
  4. LENALIDOMIDE [Suspect]
     Active Substance: LENALIDOMIDE
     Dosage: (21 DAY CYCLES)
     Route: 048

REACTIONS (1)
  - Skin toxicity [Unknown]
